FAERS Safety Report 11785648 (Version 1)
Quarter: 2015Q4

REPORT INFORMATION
  Report Type: Spontaneous
  Country: ID (occurrence: ID)
  Receive Date: 20151130
  Receipt Date: 20151130
  Transmission Date: 20160305
  Serious: Yes (Death)
  Sender: FDA-Public Use
  Company Number: ID-BAYER-2015-403826

PATIENT
  Age: 61 Year
  Sex: Male

DRUGS (1)
  1. NEXAVAR [Suspect]
     Active Substance: SORAFENIB
     Indication: HEPATOCELLULAR CARCINOMA
     Dosage: 200 MG, QD
     Route: 048
     Dates: start: 20150815, end: 201509

REACTIONS (5)
  - Myalgia [None]
  - Condition aggravated [None]
  - Abdominal pain [Recovering/Resolving]
  - Constipation [None]
  - Death [Fatal]

NARRATIVE: CASE EVENT DATE: 20150815
